FAERS Safety Report 12650514 (Version 2)
Quarter: 2017Q4

REPORT INFORMATION
  Report Type: Spontaneous
  Country: US (occurrence: US)
  Receive Date: 20160815
  Receipt Date: 20171117
  Transmission Date: 20180320
  Serious: No
  Sender: FDA-Public Use
  Company Number: US-ASTRAZENECA-2016SE83967

PATIENT
  Age: 858 Month
  Sex: Female
  Weight: 104.3 kg

DRUGS (9)
  1. LASIX [Concomitant]
     Active Substance: FUROSEMIDE
     Indication: FLUID RETENTION
  2. BYETTA [Suspect]
     Active Substance: EXENATIDE
     Indication: TYPE 2 DIABETES MELLITUS
     Dosage: 10.0UG UNKNOWN
     Route: 065
  3. CARBIDOPA. [Concomitant]
     Active Substance: CARBIDOPA
     Indication: HYPERTENSION
  4. METFORMIN [Concomitant]
     Active Substance: METFORMIN HYDROCHLORIDE
     Indication: DIABETES MELLITUS
  5. LISINOPRIL. [Suspect]
     Active Substance: LISINOPRIL
     Dosage: 1/2 TAB ON IN THE MORNING AND ONE AT NIGHT
     Route: 048
  6. JANUVIA [Concomitant]
     Active Substance: SITAGLIPTIN PHOSPHATE
     Indication: DIABETES MELLITUS
  7. LOSARTAN. [Concomitant]
     Active Substance: LOSARTAN
  8. ALLOPURINOL. [Concomitant]
     Active Substance: ALLOPURINOL
  9. OMEGA 3 [Concomitant]
     Active Substance: OMEGA-3 FATTY ACIDS

REACTIONS (7)
  - Type 2 diabetes mellitus [Unknown]
  - Drug dose omission [Recovered/Resolved]
  - Arthritis [Unknown]
  - Device malfunction [Unknown]
  - Wrong technique in device usage process [Unknown]
  - Underdose [Unknown]
  - Memory impairment [Unknown]

NARRATIVE: CASE EVENT DATE: 201601
